FAERS Safety Report 5290821-8 (Version None)
Quarter: 2007Q2

REPORT INFORMATION
  Report Type: 
  Country: None (occurrence: None)
  Receive Date: 20070409
  Receipt Date: 20070327
  Transmission Date: 20071010
  Serious: Yes (Death, Life-Threatening, Hospitalization, Other)
  Sender: FDA-Public Use
  Company Number: BR-PFIZER INC-2007025593

PATIENT
  Age: 81 Year
  Sex: Female

DRUGS (2)
  1. NEURONTIN [Suspect]
     Indication: CARDIAC DISORDER
     Route: 048
     Dates: start: 20061201, end: 20070201
  2. ALL OTHER THERAPEUTIC PRODUCTS [Concomitant]

REACTIONS (4)
  - ANAEMIA [None]
  - CARDIAC DISORDER [None]
  - DECREASED APPETITE [None]
  - INFARCTION [None]
